FAERS Safety Report 5051655-2 (Version None)
Quarter: 2006Q3

REPORT INFORMATION
  Report Type: 
  Country: None (occurrence: None)
  Receive Date: 20060711
  Receipt Date: 20060626
  Transmission Date: 20061208
  Serious: Yes (Other)
  Sender: FDA-Public Use
  Company Number: 2006PV016301

PATIENT
  Age: 75 Year
  Sex: Female
  Weight: 110.6777 kg

DRUGS (8)
  1. BYETTA [Suspect]
     Indication: DIABETES MELLITUS NON-INSULIN-DEPENDENT
     Dosage: 5 MCG; BID; SC
     Route: 058
     Dates: start: 20060313
  2. HUMULIN N [Suspect]
     Indication: DIABETES MELLITUS
     Dosage: 68 UNITS; QD;
     Dates: start: 19890101
  3. HUMALOG [Suspect]
     Indication: DIABETES MELLITUS
     Dosage: 20 UNITS; QD;
     Dates: start: 19890101
  4. HUMULIN N [Concomitant]
  5. HUMULIN N [Concomitant]
  6. HUMULIN N [Concomitant]
  7. HUMALOG [Concomitant]
  8. HUMALOG [Concomitant]

REACTIONS (7)
  - BLOOD GLUCOSE DECREASED [None]
  - DRUG DOSE OMISSION [None]
  - HYPERHIDROSIS [None]
  - LOSS OF CONSCIOUSNESS [None]
  - SCREAMING [None]
  - SYNCOPE [None]
  - WEIGHT DECREASED [None]
